FAERS Safety Report 7379139-7 (Version None)
Quarter: 2011Q1

REPORT INFORMATION
  Report Type: 
  Country: None (occurrence: None)
  Receive Date: 20110328
  Receipt Date: 20110315
  Transmission Date: 20110831
  Serious: Yes (Other)
  Sender: FDA-Public Use
  Company Number: PHHY2010DE83490

PATIENT
  Age: 59 Year
  Sex: Male

DRUGS (1)
  1. MYCOPHENOLIC ACID [Suspect]
     Indication: RENAL TRANSPLANT
     Dosage: 1440 MG, PER DAY
     Route: 048
     Dates: start: 20080403, end: 20080915

REACTIONS (5)
  - RENAL DISORDER [None]
  - ANAEMIA [None]
  - WOUND DEHISCENCE [None]
  - BONE MARROW FAILURE [None]
  - BLOOD CREATININE INCREASED [None]
